FAERS Safety Report 4699970-6 (Version None)
Quarter: 2005Q2

REPORT INFORMATION
  Report Type: 
  Country: None (occurrence: None)
  Receive Date: 20050623
  Receipt Date: 20050616
  Transmission Date: 20051028
  Serious: Yes (Hospitalization)
  Sender: FDA-Public Use
  Company Number: MEDI-0003484

PATIENT
  Age: 21 Year
  Sex: Female

DRUGS (3)
  1. ETHYOL [Suspect]
     Indication: RADIOTHERAPY
     Dosage: 500 MG, SUBCUTANEOUS
     Route: 058
     Dates: start: 20050223, end: 20050307
  2. TYLENOL W/ CODEINE NO. 3 [Concomitant]
  3. RADAITION THERAPY [Concomitant]

REACTIONS (12)
  - ANXIETY [None]
  - CELLULITIS [None]
  - CONTUSION [None]
  - COUGH [None]
  - EATING DISORDER [None]
  - FACE INJURY [None]
  - GRAND MAL CONVULSION [None]
  - INJECTION SITE ERYTHEMA [None]
  - NAUSEA [None]
  - PYREXIA [None]
  - RASH [None]
  - VOMITING [None]
